FAERS Safety Report 9448166 (Version 1)
Quarter: 2013Q3

REPORT INFORMATION
  Report Type: Spontaneous
  Country: US (occurrence: None)
  Receive Date: 20130807
  Receipt Date: 20130807
  Transmission Date: 20140515
  Serious: Yes (Hospitalization)
  Sender: FDA-Public Use
  Company Number: None

PATIENT
  Age: 59 Year
  Sex: Female

DRUGS (14)
  1. VANCOMYCIN 1 GRAM HOSPIRA [Suspect]
     Indication: URINARY TRACT INFECTION
     Route: 042
     Dates: start: 20130723
  2. VANCOMYCIN 1 GRAM HOSPIRA [Suspect]
     Indication: WOUND INFECTION
     Route: 042
     Dates: start: 20130723
  3. PIPERACILLIN/TAZOBACTAM [Suspect]
     Indication: URINARY TRACT INFECTION
     Route: 042
     Dates: start: 20130723
  4. PIPERACILLIN/TAZOBACTAM [Suspect]
     Indication: WOUND INFECTION
     Route: 042
     Dates: start: 20130723
  5. VITB12 [Concomitant]
  6. COLACE [Concomitant]
  7. VASOTEC [Concomitant]
  8. FENTANYL PATCH [Concomitant]
  9. SYNTHROID [Concomitant]
  10. LACTULOSE [Concomitant]
  11. LISINOPRIL [Concomitant]
  12. MAGNESIUM [Concomitant]
  13. METFORMIN [Concomitant]
  14. NADOLOL [Concomitant]

REACTIONS (7)
  - Cheyne-Stokes respiration [None]
  - Hyperhidrosis [None]
  - Pallor [None]
  - Blood glucose increased [None]
  - Oxygen saturation decreased [None]
  - Cardio-respiratory arrest [None]
  - Posture abnormal [None]
